FAERS Safety Report 14141015 (Version 1)
Quarter: 2017Q4

REPORT INFORMATION
  Report Type: Spontaneous
  Country: US (occurrence: US)
  Receive Date: 20171027
  Receipt Date: 20171027
  Transmission Date: 20180321
  Serious: Yes (Other)
  Sender: FDA-Public Use
  Company Number: None

PATIENT
  Age: 46 Year
  Sex: Male
  Weight: 84.8 kg

DRUGS (10)
  1. PROCHLORPERAZINE (COMPAZINE) [Concomitant]
  2. LIDOCAINE/PRILOCAINE (EMLA) [Concomitant]
  3. NEURONTIN [Concomitant]
     Active Substance: GABAPENTIN
  4. PEPCID [Concomitant]
     Active Substance: FAMOTIDINE
  5. ZOFRAN [Concomitant]
     Active Substance: ONDANSETRON HYDROCHLORIDE
  6. DECADRON [Concomitant]
     Active Substance: DEXAMETHASONE
  7. OLARATUMAB [Suspect]
     Active Substance: OLARATUMAB
     Indication: SARCOMA
     Dosage: OTHER FREQUENCY:D1,8 OF 21D CYCLE;?
     Route: 041
     Dates: start: 20170628, end: 20170628
  8. PALONSETRON (ALOXI) [Concomitant]
  9. ROXICODONE [Concomitant]
     Active Substance: OXYCODONE HYDROCHLORIDE
  10. IBUPROFEN (ADVIL) [Concomitant]

REACTIONS (6)
  - Rash [None]
  - Pruritus [None]
  - Hypertension [None]
  - Tachycardia [None]
  - Flushing [None]
  - Infusion related reaction [None]

NARRATIVE: CASE EVENT DATE: 20170628
